FAERS Safety Report 7578997-0 (Version None)
Quarter: 2011Q2

REPORT INFORMATION
  Report Type: 
  Country: None (occurrence: None)
  Receive Date: 20110628
  Receipt Date: 20110622
  Transmission Date: 20111010
  Serious: Yes (Hospitalization)
  Sender: FDA-Public Use
  Company Number: US-BAXTER-2011BH020629

PATIENT
  Sex: Male

DRUGS (1)
  1. DIANEAL [Suspect]
     Indication: PERITONEAL DIALYSIS
     Route: 033

REACTIONS (5)
  - BLOOD GLUCOSE INCREASED [None]
  - HYPERTENSION [None]
  - HEART RATE INCREASED [None]
  - ATRIAL FIBRILLATION [None]
  - HYPOGLYCAEMIA [None]
